FAERS Safety Report 8795106 (Version 1)
Quarter: 2012Q4

REPORT INFORMATION
  Report Type: Report from Study
  Country: KE (occurrence: KE)
  Receive Date: 20120917
  Receipt Date: 20120917
  Transmission Date: 20130627
  Serious: Yes (Hospitalization)
  Sender: FDA-Public Use
  Company Number: KE-GILEAD-2012-0061123

PATIENT
  Age: 24 Year
  Sex: Female

DRUGS (3)
  1. TENOFOVIR DISOPROXIL FUMARATE [Suspect]
     Indication: PROPHYLAXIS AGAINST HIV INFECTION
     Dosage: UNK
     Dates: start: 20090924, end: 20120625
  2. SULFADOXINE PYRIME [Concomitant]
     Indication: MALARIA
     Dosage: UNK
     Dates: start: 20120624, end: 20120624
  3. AMOXICILLIN [Concomitant]
     Indication: RESPIRATORY TRACT INFECTION
     Dosage: UNK
     Dates: start: 20120624, end: 20120624

REACTIONS (1)
  - Abortion spontaneous [Recovered/Resolved]
